FAERS Safety Report 4348449-X (Version None)
Quarter: 2004Q2

REPORT INFORMATION
  Report Type: 
  Country: None (occurrence: None)
  Receive Date: 20040423
  Receipt Date: 20040412
  Transmission Date: 20050107
  Serious: Yes (Hospitalization, Disabling, Other)
  Sender: FDA-Public Use
  Company Number: 2004203652US

PATIENT
  Age: 75 Year
  Sex: Female

DRUGS (3)
  1. ALDACTAZIDE [Suspect]
     Indication: BLOOD PRESSURE
     Dosage: 1 DF, QD
     Dates: end: 20040301
  2. POTASSIUM [Concomitant]
  3. MACRODANTIN [Concomitant]

REACTIONS (7)
  - ASTHENIA [None]
  - DYSSTASIA [None]
  - FALL [None]
  - HYPOAESTHESIA [None]
  - PAIN IN EXTREMITY [None]
  - PERIORBITAL HAEMATOMA [None]
  - UPPER LIMB FRACTURE [None]
